FAERS Safety Report 5200696-0 (Version None)
Quarter: 2006Q4

REPORT INFORMATION
  Report Type: 
  Country: None (occurrence: None)
  Receive Date: 20061016
  Receipt Date: 20060627
  Transmission Date: 20070319
  Serious: No
  Sender: FDA-Public Use
  Company Number: 2006SP002557

PATIENT
  Age: 35 Year
  Sex: Male
  Weight: 120.2032 kg

DRUGS (5)
  1. LUNESTA [Suspect]
     Indication: INSOMNIA
     Dosage: 1.5 MG; ORAL; SEE IMAGE
     Route: 048
     Dates: start: 20060601, end: 20060601
  2. LUNESTA [Suspect]
     Indication: INSOMNIA
     Dosage: 1.5 MG; ORAL; SEE IMAGE
     Route: 048
     Dates: start: 20060601
  3. AMLODIPINE BESYLATE [Concomitant]
  4. LEXAPRO [Concomitant]
  5. SYNTHROID [Concomitant]

REACTIONS (1)
  - DYSGEUSIA [None]
